FAERS Safety Report 18996931 (Version 2)
Quarter: 2021Q1

REPORT INFORMATION
  Report Type: Report from Study
  Country: CA (occurrence: CA)
  Receive Date: 20210311
  Receipt Date: 20210318
  Transmission Date: 20210420
  Serious: Yes (Other)
  Sender: FDA-Public Use
  Company Number: PHHY2018CA188257

PATIENT
  Age: 54 Year
  Sex: Female

DRUGS (1)
  1. LUCENTIS [Suspect]
     Active Substance: RANIBIZUMAB
     Indication: NEOVASCULAR AGE-RELATED MACULAR DEGENERATION
     Dosage: UNK (10 MG/ML)
     Route: 031
     Dates: start: 20170606

REACTIONS (3)
  - Retinal oedema [Unknown]
  - Macular degeneration [Unknown]
  - Retinal exudates [Unknown]

NARRATIVE: CASE EVENT DATE: 20210222
